FAERS Safety Report 8824870 (Version 2)
Quarter: 2013Q2

REPORT INFORMATION
  Report Type: Report from Study
  Country: US (occurrence: US)
  Receive Date: 20121004
  Receipt Date: 20130612
  Transmission Date: 20140414
  Serious: Yes (Death)
  Sender: FDA-Public Use
  Company Number: US-ASTELLAS-2012US009637

PATIENT
  Age: 81 Year
  Sex: Male
  Weight: 73 kg

DRUGS (8)
  1. ENZALUTAMIDE [Suspect]
     Indication: PROSTATE CANCER
     Dosage: 160 MG, UID/QD
     Route: 065
     Dates: start: 20120705
  2. ZOFRAN                             /00955301/ [Concomitant]
     Indication: NAUSEA
     Dosage: 8 MG, PRN
     Route: 048
     Dates: start: 20120730
  3. VITAMIN D                          /00107901/ [Concomitant]
     Indication: ROUTINE HEALTH MAINTENANCE
     Dosage: 50000 IU, WEEKLY
     Route: 048
     Dates: start: 201205
  4. CRESTOR [Concomitant]
     Indication: HYPERCHOLESTEROLAEMIA
     Dosage: 20 MG, UNKNOWN/D
     Route: 048
     Dates: start: 2008
  5. ZOMETA [Concomitant]
     Indication: ROUTINE HEALTH MAINTENANCE
     Dosage: 4 MG, MONTHLY
     Route: 042
     Dates: start: 2011
  6. TOPROL [Concomitant]
     Indication: HYPERTENSION
     Dosage: 50 MG, UNKNOWN/D
     Route: 048
     Dates: start: 2010
  7. VERAPAMIL [Concomitant]
     Indication: HYPERTENSION
     Dosage: 40 MG, UNKNOWN/D
     Route: 048
     Dates: start: 2010
  8. ASPIRIN [Concomitant]
     Indication: CARDIOVASCULAR EVENT PROPHYLAXIS
     Dosage: 81 MG, UNKNOWN/D
     Route: 048
     Dates: start: 2007

REACTIONS (1)
  - Death [Fatal]
